FAERS Safety Report 18235255 (Version 1)
Quarter: 2020Q3

REPORT INFORMATION
  Report Type: Spontaneous
  Country: US (occurrence: US)
  Receive Date: 20200904
  Receipt Date: 20200904
  Transmission Date: 20201103
  Serious: Yes (Other)
  Sender: FDA-Public Use
  Company Number: US-BAXTER-2020BAX017808

PATIENT
  Age: 44 Year
  Sex: Female

DRUGS (5)
  1. RANOLAZINE. [Suspect]
     Active Substance: RANOLAZINE
     Indication: DRUG THERAPY
     Route: 065
  2. NEXTERONE [Suspect]
     Active Substance: AMIODARONE HYDROCHLORIDE
     Indication: DRUG THERAPY
     Route: 042
  3. MEXILETINE [Suspect]
     Active Substance: MEXILETINE
     Indication: DRUG THERAPY
     Route: 065
  4. LIDOCAINE HYDROCHLORIDE AND 5% DEXTROSE INJECTION, USP [Suspect]
     Active Substance: LIDOCAINE HYDROCHLORIDE
     Indication: DRUG THERAPY
     Route: 065
  5. METOPROLOL. [Concomitant]
     Active Substance: METOPROLOL
     Indication: CARDIAC FAILURE
     Dosage: LOW DOSE
     Route: 065

REACTIONS (4)
  - Drug ineffective [Unknown]
  - Sinus bradycardia [Recovered/Resolved]
  - Nodal rhythm [Recovered/Resolved]
  - Electrocardiogram QT prolonged [Recovered/Resolved]
